FAERS Safety Report 8225138-2 (Version None)
Quarter: 2012Q1

REPORT INFORMATION
  Report Type: 
  Country: None (occurrence: None)
  Receive Date: 20120321
  Receipt Date: 20120313
  Transmission Date: 20120608
  Serious: Yes (Other)
  Sender: FDA-Public Use
  Company Number: CA-JNJFOC-20120307161

PATIENT
  Sex: Male
  Weight: 68 kg

DRUGS (2)
  1. REMICADE [Suspect]
     Indication: CROHN'S DISEASE
     Route: 042
     Dates: start: 20100701
  2. IMODIUM [Concomitant]
     Dosage: IN A.M.
     Route: 065

REACTIONS (3)
  - PNEUMONIA [None]
  - DYSPNOEA [None]
  - CHEST PAIN [None]
